FAERS Safety Report 9483897 (Version 1)
Quarter: 2013Q3

REPORT INFORMATION
  Report Type: Spontaneous
  Country: CA (occurrence: CA)
  Receive Date: 20130828
  Receipt Date: 20130828
  Transmission Date: 20140515
  Serious: Yes (Other)
  Sender: FDA-Public Use
  Company Number: CA-AMGEN-KDL349459

PATIENT
  Sex: Male

DRUGS (4)
  1. ENBREL [Suspect]
     Indication: ANKYLOSING SPONDYLITIS
     Dosage: 50 MG, QWK
     Route: 058
     Dates: start: 20090507
  2. GATIFLOXACIN [Concomitant]
     Dosage: UNK UNK, UNK
     Route: 047
  3. PREDNISOLONE ACETATE [Concomitant]
     Dosage: UNK UNK, UNK
     Route: 047
  4. KETAZOLAM [Concomitant]
     Dosage: UNK UNK, UNK
     Route: 047

REACTIONS (2)
  - Tremor [Unknown]
  - Dizziness [Unknown]
